FAERS Safety Report 9890476 (Version 1)
Quarter: 2014Q1

REPORT INFORMATION
  Report Type: Spontaneous
  Country: US (occurrence: None)
  Receive Date: 20140211
  Receipt Date: 20140211
  Transmission Date: 20141002
  Serious: Yes (Other)
  Sender: FDA-Public Use
  Company Number: None

PATIENT
  Age: 36 Year
  Sex: Male

DRUGS (3)
  1. RITALIN [Suspect]
     Indication: PSYCHOMOTOR HYPERACTIVITY
     Dosage: } 20 YEARS AGO
  2. PHENOBARBITAL [Suspect]
     Indication: PSYCHOMOTOR HYPERACTIVITY
     Dosage: } 20 YEARS AGO
  3. PHENOBARBITAL [Suspect]
     Indication: OBSESSIVE-COMPULSIVE DISORDER
     Dosage: } 20 YEARS AGO

REACTIONS (1)
  - Abnormal behaviour [None]
